FAERS Safety Report 24141863 (Version 1)
Quarter: 2024Q3

REPORT INFORMATION
  Report Type: Other
  Country: LB (occurrence: LB)
  Receive Date: 20240726
  Receipt Date: 20240726
  Transmission Date: 20241016
  Serious: Yes (Hospitalization, Other)
  Sender: B BRAUN
  Company Number: LB-B.Braun Medical Inc.-2159663

PATIENT
  Age: 82 Year
  Sex: Female

DRUGS (10)
  1. HEPARIN SODIUM IN DEXTROSE [Suspect]
     Active Substance: HEPARIN SODIUM
     Indication: Pulmonary embolism
  2. PIPERACILLIN AND TAZOBACTAM [Suspect]
     Active Substance: PIPERACILLIN SODIUM\TAZOBACTAM SODIUM
  3. Clobestol [Concomitant]
  4. BILASTINE [Concomitant]
     Active Substance: BILASTINE
  5. DESLORATADINE [Concomitant]
     Active Substance: DESLORATADINE
  6. GINKGO [Concomitant]
     Active Substance: GINKGO
  7. Daflon [Concomitant]
  8. QUETIAPINE [Concomitant]
     Active Substance: QUETIAPINE
  9. MOLSIDOMINE [Concomitant]
     Active Substance: MOLSIDOMINE
  10. MEMANTINE [Concomitant]
     Active Substance: MEMANTINE

REACTIONS (2)
  - Bullous haemorrhagic dermatosis [Recovering/Resolving]
  - Thrombocytopenia [Recovering/Resolving]
